FAERS Safety Report 10066198 (Version 3)
Quarter: 2015Q2

REPORT INFORMATION
  Report Type: Spontaneous
  Country: US (occurrence: US)
  Receive Date: 20140408
  Receipt Date: 20150506
  Transmission Date: 20150821
  Serious: Yes (Death, Life-Threatening, Hospitalization, Other)
  Sender: FDA-Public Use
  Company Number: US-009507513-1404USA004103

PATIENT
  Sex: Male
  Weight: 73.92 kg

DRUGS (1)
  1. JANUVIA [Suspect]
     Active Substance: SITAGLIPTIN PHOSPHATE
     Indication: TYPE 2 DIABETES MELLITUS
     Dosage: 100 MG, QD
     Route: 048
     Dates: start: 20110809

REACTIONS (36)
  - Metastases to liver [Unknown]
  - Dysphonia [Unknown]
  - Heart rate irregular [Unknown]
  - Pancreatic carcinoma metastatic [Fatal]
  - Erectile dysfunction [Unknown]
  - Splenectomy [Unknown]
  - Coronary artery bypass [Unknown]
  - Coronary artery disease [Unknown]
  - Non-cardiac chest pain [Unknown]
  - Eye pain [Unknown]
  - Syncope [Unknown]
  - Tinnitus [Unknown]
  - Ischaemic cardiomyopathy [Unknown]
  - Angioplasty [Unknown]
  - Ulcer [Unknown]
  - Palpitations [Unknown]
  - Urinary tract disorder [Unknown]
  - Headache [Unknown]
  - Metastases to lymph nodes [Unknown]
  - Gastrooesophageal reflux disease [Unknown]
  - Osteoarthritis [Unknown]
  - Arterial restenosis [Unknown]
  - Anaemia [Unknown]
  - Sleep disorder [Unknown]
  - Pancreatectomy [Unknown]
  - Diabetic neuropathy [Unknown]
  - Intervertebral disc degeneration [Unknown]
  - Cerebral small vessel ischaemic disease [Unknown]
  - Peripheral vascular disorder [Unknown]
  - Stent placement [Unknown]
  - Diplopia [Unknown]
  - Dizziness [Unknown]
  - Gouty arthritis [Unknown]
  - Lipoma [Unknown]
  - Breath odour [Unknown]
  - Temperature intolerance [Unknown]

NARRATIVE: CASE EVENT DATE: 2011
